FAERS Safety Report 8477453-5 (Version None)
Quarter: 2012Q2

REPORT INFORMATION
  Report Type: 
  Country: None (occurrence: None)
  Receive Date: 20120629
  Receipt Date: 20120622
  Transmission Date: 20120825
  Serious: Yes (Hospitalization, Other)
  Sender: FDA-Public Use
  Company Number: PHHY2012MX049103

PATIENT
  Sex: Female

DRUGS (6)
  1. LOPRESSOR [Concomitant]
     Indication: HYPERTENSION
     Dosage: 1 DF, PER DAY
     Dates: start: 20120301
  2. CILOSTAZOL [Concomitant]
     Indication: THROMBOSIS
     Dosage: 1 DF, PER DAY
     Dates: start: 20110101
  3. CLOPIDOGREL BISULFATE [Concomitant]
     Indication: ANTICOAGULANT THERAPY
     Dosage: 1 DF, PER DAY
     Dates: start: 20110101, end: 20120601
  4. DABIGATRAN ETEXILATE [Concomitant]
     Indication: THROMBOSIS
     Dosage: 1 DF, PER DAY
     Dates: start: 20120601
  5. EXFORGE HCT [Suspect]
     Dosage: 2 DF (VALS 160 MG, AMLO 5 MG, HYDR 12.5 MG),  PER DAY
     Dates: start: 20120501
  6. EXFORGE HCT [Suspect]
     Indication: HYPERTENSION
     Dosage: 1 DF(VALS 160 MG, AMLO 5 MG, HYDR 12.5 MG),  PER DAY
     Dates: start: 20120528

REACTIONS (6)
  - SWELLING [None]
  - BLOOD PRESSURE FLUCTUATION [None]
  - PAIN [None]
  - FEMUR FRACTURE [None]
  - FALL [None]
  - HIP FRACTURE [None]
